FAERS Safety Report 9021893 (Version 4)
Quarter: 2017Q3

REPORT INFORMATION
  Report Type: Spontaneous
  Country: US (occurrence: US)
  Receive Date: 20130118
  Receipt Date: 20170802
  Transmission Date: 20171128
  Serious: No
  Sender: FDA-Public Use
  Company Number: US-009507513-1208USA007061

PATIENT
  Sex: Female

DRUGS (4)
  1. NEUPRO [Suspect]
     Active Substance: ROTIGOTINE
     Dosage: 4 MG, UNK
     Dates: start: 2011
  2. SINEMET CR [Suspect]
     Active Substance: CARBIDOPA\LEVODOPA
     Dosage: 25MG/100MG
     Route: 048
  3. SINEMET [Suspect]
     Active Substance: CARBIDOPA\LEVODOPA
     Indication: PARKINSON^S DISEASE
     Dosage: ONE AND ONE HALF A TABLET
     Route: 048
     Dates: start: 2005
  4. SINEMET [Suspect]
     Active Substance: CARBIDOPA\LEVODOPA
     Dosage: 15 PILLS, PER DAY
     Route: 048

REACTIONS (13)
  - Muscle atrophy [Unknown]
  - Psychotic disorder [Unknown]
  - Nuchal rigidity [Unknown]
  - Wrong technique in product usage process [Unknown]
  - Neck pain [Unknown]
  - Musculoskeletal stiffness [Unknown]
  - Diplopia [Unknown]
  - Mobility decreased [Unknown]
  - Weight decreased [Unknown]
  - Malaise [Unknown]
  - Depression [Unknown]
  - Pain in extremity [Unknown]
  - Off label use [Unknown]

NARRATIVE: CASE EVENT DATE: 2005
